FAERS Safety Report 5400731-0 (Version None)
Quarter: 2007Q3

REPORT INFORMATION
  Report Type: 
  Country: None (occurrence: None)
  Receive Date: 20070730
  Receipt Date: 20070718
  Transmission Date: 20080115
  Serious: Yes (Other)
  Sender: FDA-Public Use
  Company Number: PFIZER INC-2007059514

PATIENT
  Sex: Female

DRUGS (1)
  1. QUINAPRIL HCL [Suspect]
     Indication: GLOMERULONEPHRITIS
     Route: 048
     Dates: start: 20060101, end: 20060101

REACTIONS (2)
  - CONDITION AGGRAVATED [None]
  - GLOMERULONEPHRITIS [None]
